FAERS Safety Report 8474930-8 (Version None)
Quarter: 2012Q2

REPORT INFORMATION
  Report Type: 
  Country: None (occurrence: None)
  Receive Date: 20120628
  Receipt Date: 20120622
  Transmission Date: 20120825
  Serious: Yes (Hospitalization)
  Sender: FDA-Public Use
  Company Number: PHHY2012FR054122

PATIENT
  Sex: Female

DRUGS (1)
  1. TASIGNA [Suspect]
     Indication: CHRONIC MYELOID LEUKAEMIA
     Dosage: 4 DF DAILY
     Route: 048
     Dates: start: 20060620, end: 20110112

REACTIONS (8)
  - HAIR TEXTURE ABNORMAL [None]
  - GAIT DISTURBANCE [None]
  - FEMORAL ARTERY OCCLUSION [None]
  - PRURITUS [None]
  - ARTERIAL DISORDER [None]
  - PERIPHERAL ARTERIAL OCCLUSIVE DISEASE [None]
  - HAIR COLOUR CHANGES [None]
  - MUSCLE SPASMS [None]
